FAERS Safety Report 8162754-0 (Version None)
Quarter: 2012Q1

REPORT INFORMATION
  Report Type: 
  Country: None (occurrence: None)
  Receive Date: 20120103
  Receipt Date: 20111005
  Transmission Date: 20120608
  Serious: No
  Sender: FDA-Public Use
  Company Number: AE-2011-002086

PATIENT
  Age: 50 Year
  Sex: Female
  Weight: 75.7507 kg

DRUGS (5)
  1. PEGASYS [Concomitant]
  2. RIBAVIRIN [Concomitant]
  3. LISINOPRIL [Concomitant]
  4. PAXIL [Concomitant]
  5. INCIVEK [Suspect]
     Dosage: 1125 MG (375 MG, 3 IN 1 D), ORAL
     Route: 048
     Dates: start: 20110819

REACTIONS (5)
  - EYE PAIN [None]
  - PHOTOPHOBIA [None]
  - HEADACHE [None]
  - RASH GENERALISED [None]
  - NAUSEA [None]
